FAERS Safety Report 7922667-3 (Version None)
Quarter: 2011Q4

REPORT INFORMATION
  Report Type: 
  Country: None (occurrence: None)
  Receive Date: 20111117
  Receipt Date: 20110120
  Transmission Date: 20120403
  Serious: No
  Sender: FDA-Public Use
  Company Number: US-ALLERGAN-1100930US

PATIENT
  Sex: Female

DRUGS (2)
  1. COMBIGAN [Suspect]
     Indication: GLAUCOMA
     Dosage: 1 GTT, BID
     Dates: start: 20100901
  2. XALATAN [Concomitant]
     Indication: GLAUCOMA

REACTIONS (2)
  - FATIGUE [None]
  - HEADACHE [None]
